FAERS Safety Report 17041164 (Version 1)
Quarter: 2019Q4

REPORT INFORMATION
  Report Type: Report from Study
  Country: US (occurrence: US)
  Receive Date: 20191118
  Receipt Date: 20191118
  Transmission Date: 20200122
  Serious: Yes (Other)
  Sender: FDA-Public Use
  Company Number: US-ROCHE-2470173

PATIENT
  Sex: Male

DRUGS (1)
  1. NUTROPIN [Suspect]
     Active Substance: SOMATROPIN
     Indication: HYPOPITUITARISM
     Dosage: NUSPIN 10 MG PEN, 0.1 MG 5DAYS/WEEK
     Route: 058

REACTIONS (2)
  - Weight decreased [Unknown]
  - Impaired gastric emptying [Unknown]
